FAERS Safety Report 5370906-8 (Version None)
Quarter: 2007Q2

REPORT INFORMATION
  Report Type: 
  Country: None (occurrence: None)
  Receive Date: 20070626
  Receipt Date: 20070611
  Transmission Date: 20071010
  Serious: Yes (Hospitalization)
  Sender: FDA-Public Use
  Company Number: US-SHR-US-2007-005666

PATIENT
  Age: 39 Year
  Sex: Male

DRUGS (1)
  1. BETASERON [Suspect]
     Indication: RELAPSING-REMITTING MULTIPLE SCLEROSIS
     Dosage: 8 MIU, EVERY 2D
     Route: 058
     Dates: start: 20061216

REACTIONS (5)
  - EYE PAIN [None]
  - HEART RATE INCREASED [None]
  - HYPOTENSION [None]
  - OEDEMA PERIPHERAL [None]
  - VITAMIN B12 DECREASED [None]
